FAERS Safety Report 7008597-2 (Version None)
Quarter: 2010Q3

REPORT INFORMATION
  Report Type: 
  Country: None (occurrence: None)
  Receive Date: 20100922
  Receipt Date: 20100908
  Transmission Date: 20110219
  Serious: Yes (Life-Threatening, Hospitalization)
  Sender: FDA-Public Use
  Company Number: TR-WATSON-2010-12568

PATIENT
  Age: 34 Year
  Sex: Male

DRUGS (1)
  1. METFORMIN HCL [Suspect]
     Indication: PRODUCT USED FOR UNKNOWN INDICATION
     Dosage: 170 METFORMIN 850-MG TABLETS
     Route: 048

REACTIONS (3)
  - INTENTIONAL OVERDOSE [None]
  - LACTIC ACIDOSIS [None]
  - RENAL FAILURE ACUTE [None]
